FAERS Safety Report 9358246 (Version 1)
Quarter: 2013Q2

REPORT INFORMATION
  Report Type: Spontaneous
  Country: FR (occurrence: FR)
  Receive Date: 20130620
  Receipt Date: 20130620
  Transmission Date: 20140414
  Serious: Yes (Hospitalization)
  Sender: FDA-Public Use
  Company Number: FR-JNJFOC-20130610001

PATIENT
  Age: 69 Year
  Sex: Male

DRUGS (7)
  1. XARELTO [Suspect]
     Indication: PRODUCT USED FOR UNKNOWN INDICATION
     Route: 048
     Dates: end: 20130328
  2. KARDEGIC [Suspect]
     Indication: PRODUCT USED FOR UNKNOWN INDICATION
     Route: 048
     Dates: end: 20130328
  3. METFORMIN [Concomitant]
     Route: 065
  4. RAMIPRIL [Concomitant]
     Route: 065
  5. CRESTOR [Concomitant]
     Route: 065
  6. FINASTERIDE [Concomitant]
     Route: 065
  7. FUROSEMIDE [Concomitant]
     Route: 065

REACTIONS (1)
  - Anaemia [Recovering/Resolving]
